FAERS Safety Report 7083959-6 (Version None)
Quarter: 2010Q4

REPORT INFORMATION
  Report Type: 
  Country: None (occurrence: None)
  Receive Date: 20101104
  Receipt Date: 20100429
  Transmission Date: 20110411
  Serious: No
  Sender: FDA-Public Use
  Company Number: US-ABBOTT-10P-163-0642470-00

PATIENT
  Sex: Female
  Weight: 61.29 kg

DRUGS (2)
  1. KALETRA [Suspect]
     Indication: HIV INFECTION
     Dates: start: 20090101, end: 20090101
  2. COMBIVIR [Concomitant]
     Indication: HIV INFECTION

REACTIONS (2)
  - BLOOD CHOLESTEROL INCREASED [None]
  - DIARRHOEA [None]
